FAERS Safety Report 19661674 (Version 2)
Quarter: 2021Q3

REPORT INFORMATION
  Report Type: Spontaneous
  Country: US (occurrence: US)
  Receive Date: 20210805
  Receipt Date: 20210827
  Transmission Date: 20211014
  Serious: No
  Sender: FDA-Public Use
  Company Number: US-PFIZER INC-202100969934

PATIENT
  Age: 56 Year
  Sex: Female

DRUGS (1)
  1. PREMARIN [Suspect]
     Active Substance: ESTROGENS, CONJUGATED
     Indication: VULVOVAGINAL DRYNESS
     Dosage: 3 MG, UNK

REACTIONS (5)
  - Dysphonia [Unknown]
  - Smear cervix abnormal [Unknown]
  - Off label use [Unknown]
  - Oropharyngeal discomfort [Unknown]
  - Human papilloma virus test positive [Unknown]
